FAERS Safety Report 8315200-8 (Version None)
Quarter: 2012Q2

REPORT INFORMATION
  Report Type: 
  Country: None (occurrence: None)
  Receive Date: 20120426
  Receipt Date: 20120419
  Transmission Date: 20120825
  Serious: Yes (Hospitalization)
  Sender: FDA-Public Use
  Company Number: US-BAYER-2012-000788

PATIENT
  Age: 44 Year
  Sex: Female
  Weight: 49.887 kg

DRUGS (8)
  1. DROSPIRENONE AND ETHINYL ESTRADIOL [Suspect]
     Indication: PREMENSTRUAL SYNDROME
     Dosage: UNK
     Dates: start: 20080101, end: 20090101
  2. IBUPROFEN (ADVIL) [Concomitant]
  3. AZITHROMYCIN [Concomitant]
     Dosage: UNK
     Dates: start: 20090101
  4. YASMIN [Suspect]
     Indication: ADNEXA UTERI PAIN
  5. METHYLDOPA [Concomitant]
     Dosage: UNK
     Dates: start: 20050101, end: 20110101
  6. LEVAQUIN [Concomitant]
     Indication: UPPER RESPIRATORY TRACT INFECTION
     Dosage: UNK
     Dates: start: 20100401
  7. YASMIN [Suspect]
     Indication: PREMENSTRUAL SYNDROME
     Dosage: UNK
     Route: 048
     Dates: start: 20030101, end: 20080101
  8. TYLENOL (CAPLET) [Concomitant]
     Indication: PAIN IN EXTREMITY

REACTIONS (14)
  - THROMBOSIS [None]
  - PROTHROMBIN TIME PROLONGED [None]
  - DEPRESSION [None]
  - PAIN IN EXTREMITY [None]
  - BLOOD DISORDER [None]
  - SWELLING [None]
  - PAIN [None]
  - DECREASED APPETITE [None]
  - URINARY TRACT INFECTION [None]
  - BACK PAIN [None]
  - INTERNATIONAL NORMALISED RATIO INCREASED [None]
  - HAEMATURIA [None]
  - DEEP VEIN THROMBOSIS [None]
  - WEIGHT DECREASED [None]
